FAERS Safety Report 6582367-1 (Version None)
Quarter: 2010Q1

REPORT INFORMATION
  Report Type: 
  Country: None (occurrence: None)
  Receive Date: 20100216
  Receipt Date: 20100205
  Transmission Date: 20100710
  Serious: Yes (Hospitalization, Other)
  Sender: FDA-Public Use
  Company Number: BE-PERRIGO-10BE007027

PATIENT
  Age: 43 Year
  Sex: Female
  Weight: 70 kg

DRUGS (6)
  1. ACETAMINOPHEN SLOW RELEASE [Suspect]
     Indication: PROCEDURAL PAIN
     Dosage: 1 G, QID FOR 3 DAYS (TOTAL INTAKE OF 11 G)
     Route: 048
  2. KETOROLAC TROMETHAMINE [Concomitant]
     Indication: PROCEDURAL PAIN
     Dosage: 30 MG, IV
     Route: 042
  3. PROPOFOL [Concomitant]
     Indication: ANAESTHESIA
  4. DESFLURANE [Concomitant]
     Indication: ANAESTHESIA
  5. SUFENTANIL [Concomitant]
     Indication: ANAESTHESIA
  6. ROCURONIUM [Concomitant]
     Indication: ANAESTHESIA

REACTIONS (3)
  - ACUTE HEPATIC FAILURE [None]
  - CYTOLYTIC HEPATITIS [None]
  - MULTI-ORGAN FAILURE [None]
